FAERS Safety Report 7132435-0 (Version None)
Quarter: 2010Q4

REPORT INFORMATION
  Report Type: 
  Country: None (occurrence: None)
  Receive Date: 20101130
  Receipt Date: 20101130
  Transmission Date: 20110411
  Serious: Yes (Death)
  Sender: FDA-Public Use
  Company Number: None

PATIENT
  Age: 48 Year
  Sex: Female
  Weight: 52.1637 kg

DRUGS (2)
  1. NUVIGIL [Suspect]
     Indication: NARCOLEPSY
     Dosage: 150 MG DAILY PO
     Route: 048
     Dates: start: 20100915, end: 20101015
  2. NUVIGIL [Suspect]
     Indication: NARCOLEPSY
     Dosage: 250 MG DAILY PO
     Route: 048
     Dates: start: 20101015, end: 20101023

REACTIONS (7)
  - APHAGIA [None]
  - CARDIAC ARREST [None]
  - DIARRHOEA HAEMORRHAGIC [None]
  - HALLUCINATIONS, MIXED [None]
  - MANIA [None]
  - VOMITING [None]
  - WEIGHT DECREASED [None]
